FAERS Safety Report 18889519 (Version 1)
Quarter: 2021Q1

REPORT INFORMATION
  Report Type: Spontaneous
  Country: JP (occurrence: JP)
  Receive Date: 20210213
  Receipt Date: 20210213
  Transmission Date: 20210420
  Serious: Yes (Hospitalization, Other)
  Sender: FDA-Public Use
  Company Number: JP-TAKEDA-2021TUS008199

PATIENT
  Age: 80 Year
  Sex: Female

DRUGS (24)
  1. FUROSEMIDE. [Concomitant]
     Active Substance: FUROSEMIDE
     Dosage: UNK
     Route: 065
     Dates: start: 20120201
  2. ROSUVASTATIN OD [Concomitant]
     Dosage: UNK
     Route: 065
     Dates: start: 20181219
  3. ETHYL ICOSAPENTATE [Concomitant]
     Active Substance: ICOSAPENT ETHYL
     Dosage: UNK
     Route: 065
     Dates: start: 20141125
  4. CARDENALIN [Concomitant]
     Active Substance: DOXAZOSIN MESYLATE
     Dosage: UNK
     Route: 065
     Dates: start: 20111207
  5. DOXAZOSIN [Concomitant]
     Active Substance: DOXAZOSIN MESYLATE
     Dosage: UNK
     Route: 065
     Dates: start: 20121025
  6. ITOROL [Concomitant]
     Active Substance: ISOSORBIDE MONONITRATE
     Dosage: UNK
     Route: 065
     Dates: start: 20181205, end: 20181218
  7. P?TOL [MANNITOL] [Concomitant]
     Active Substance: MANNITOL
     Dosage: UNK
     Route: 065
     Dates: start: 20170912
  8. AZOSEMIDE [Concomitant]
     Active Substance: AZOSEMIDE
     Dosage: UNK
     Route: 065
     Dates: start: 20111221
  9. NIFEDIPINE. [Concomitant]
     Active Substance: NIFEDIPINE
     Dosage: UNK
     Route: 065
     Dates: start: 20111130
  10. TELMISARTAN. [Concomitant]
     Active Substance: TELMISARTAN
     Dosage: UNK
     Route: 065
     Dates: start: 20121019
  11. ALFACALCIDOL [Concomitant]
     Active Substance: ALFACALCIDOL
     Dosage: UNK
     Route: 065
     Dates: start: 20201118
  12. RENAGEL [SEVELAMER CARBONATE] [Concomitant]
     Dosage: UNK
     Route: 065
     Dates: start: 20130607, end: 20170901
  13. KAYEXALATE [Concomitant]
     Active Substance: SODIUM POLYSTYRENE SULFONATE
     Dosage: UNK
     Route: 065
     Dates: start: 20100804, end: 20100818
  14. TANDOSPIRONE CITRATE [Concomitant]
     Active Substance: TANDOSPIRONE CITRATE
     Dosage: UNK
     Route: 065
     Dates: start: 20140415
  15. TANKARU [Concomitant]
     Dosage: UNK
     Route: 065
     Dates: start: 20140809
  16. CALCITRIOL. [Concomitant]
     Active Substance: CALCITRIOL
     Dosage: UNK
     Route: 065
     Dates: start: 20100506, end: 20200728
  17. CARVEDILOL. [Concomitant]
     Active Substance: CARVEDILOL
     Dosage: UNK
     Route: 065
     Dates: start: 20181227
  18. FOSRENOL [Suspect]
     Active Substance: LANTHANUM CARBONATE
     Indication: HYPERPHOSPHATAEMIA
     Dosage: 750 MILLIGRAM
     Route: 048
     Dates: start: 20180424, end: 20180818
  19. BAZEDOXIFENE ACETATE [Concomitant]
     Active Substance: BAZEDOXIFENE ACETATE
     Dosage: UNK
     Route: 065
     Dates: start: 20140422
  20. EDIROL [Concomitant]
     Active Substance: ELDECALCITOL
     Dosage: UNK
     Route: 065
     Dates: start: 20140114, end: 20140411
  21. TAKECAB [Concomitant]
     Active Substance: VONOPRAZAN FUMARATE
     Dosage: UNK
     Route: 065
     Dates: start: 20160318
  22. ATORVASTATIN [Concomitant]
     Active Substance: ATORVASTATIN
     Dosage: UNK
     Route: 065
     Dates: end: 20171121
  23. SENNOSIDE A [Concomitant]
     Active Substance: SENNOSIDE A
     Dosage: UNK
     Route: 065
     Dates: start: 20200820
  24. NITRODERM MATRIX [Concomitant]
     Active Substance: NITROGLYCERIN
     Dosage: UNK
     Route: 065
     Dates: start: 20100429, end: 20181204

REACTIONS (6)
  - Large intestine polyp [Unknown]
  - Product residue present [Unknown]
  - Enterocolitis [Unknown]
  - Anaemia [Unknown]
  - Appendicitis [Recovering/Resolving]
  - Abdominal pain [Unknown]

NARRATIVE: CASE EVENT DATE: 20180504
